FAERS Safety Report 4551314-6 (Version None)
Quarter: 2005Q1

REPORT INFORMATION
  Report Type: 
  Country: None (occurrence: None)
  Receive Date: 20050110
  Receipt Date: 20041227
  Transmission Date: 20050727
  Serious: Yes (Hospitalization)
  Sender: FDA-Public Use
  Company Number: ZONI002088

PATIENT
  Age: 46 Year
  Sex: Female

DRUGS (1)
  1. EXCEGRAN            (ZONISAMIDE) [Suspect]
     Dosage: 400 MG, ORAL
     Route: 048
     Dates: start: 20041110, end: 20041119

REACTIONS (5)
  - ECZEMA [None]
  - FATIGUE [None]
  - JAUNDICE [None]
  - LIVER DISORDER [None]
  - NASOPHARYNGITIS [None]
